FAERS Safety Report 8943448 (Version 1)
Quarter: 2012Q4

REPORT INFORMATION
  Report Type: 
  Country: CO (occurrence: CO)
  Receive Date: 20121203
  Receipt Date: 20121203
  Transmission Date: 20130627
  Serious: Yes (Other)
  Sender: FDA-Public Use
  Company Number: CO-PFIZER INC-2012301810

PATIENT
  Age: 57 Year
  Sex: Female

DRUGS (3)
  1. LYRICA [Suspect]
     Indication: CERVICAL DISC HERNIATION
     Dosage: 75 mg, 1x/day
     Route: 048
     Dates: end: 20120424
  2. NORVAS [Suspect]
     Indication: HYPERTENSION ARTERIAL
     Dosage: half a tablet of 5 mg, 1x/day
     Route: 048
     Dates: start: 1994
  3. BETALOC ZOK ^ASTRA^ [Concomitant]
     Indication: HYPERTENSION ARTERIAL
     Dosage: 50 mg, 2x/day
     Route: 048
     Dates: start: 1994

REACTIONS (1)
  - Intervertebral disc protrusion [Recovered/Resolved]
